FAERS Safety Report 15080246 (Version 1)
Quarter: 2018Q2

REPORT INFORMATION
  Report Type: Spontaneous
  Country: FR (occurrence: FR)
  Receive Date: 20180628
  Receipt Date: 20180628
  Transmission Date: 20180711
  Serious: Yes (Hospitalization)
  Sender: FDA-Public Use
  Company Number: FR-TEVA-2018-FR-912879

PATIENT
  Age: 40 Year
  Sex: Female
  Weight: 54 kg

DRUGS (5)
  1. TRAMADOL (CHLORHYDRATE DE) [Suspect]
     Active Substance: TRAMADOL HYDROCHLORIDE
     Indication: PAIN
     Route: 065
     Dates: end: 20170510
  2. WELLVONE [Suspect]
     Active Substance: ATOVAQUONE
     Route: 048
     Dates: start: 20170214, end: 20170510
  3. ENDOXAN [Suspect]
     Active Substance: CYCLOPHOSPHAMIDE
     Indication: PLASMA CELL MYELOMA
     Dosage: 4830 MG/CURE
     Route: 042
     Dates: start: 20170503, end: 20170503
  4. EMEND [Suspect]
     Active Substance: APREPITANT
     Indication: NAUSEA
     Route: 048
     Dates: start: 20170503, end: 20170504
  5. ONDANSETRON ACCORD [Suspect]
     Active Substance: ONDANSETRON
     Indication: NAUSEA
     Route: 042
     Dates: start: 20170503, end: 20170504

REACTIONS (1)
  - Rash morbilliform [Recovering/Resolving]

NARRATIVE: CASE EVENT DATE: 20170507
